FAERS Safety Report 13852243 (Version 1)
Quarter: 2017Q3

REPORT INFORMATION
  Report Type: Spontaneous
  Country: US (occurrence: US)
  Receive Date: 20170810
  Receipt Date: 20170810
  Transmission Date: 20171127
  Serious: No
  Sender: FDA-Public Use
  Company Number: US-PFIZER INC-2017345786

PATIENT
  Age: 72 Year
  Sex: Male

DRUGS (1)
  1. SUTENT [Suspect]
     Active Substance: SUNITINIB MALATE
     Indication: RENAL CANCER
     Dosage: 50 MG, CYCLIC (1 CAPSULE BY MOUTH ONCE DAILY FOR 2 WEEKS AND OFF FOR 2 WEEKS)
     Route: 048
     Dates: start: 20170322, end: 20170807

REACTIONS (2)
  - Abdominal distension [Unknown]
  - Dyspnoea [Unknown]
